FAERS Safety Report 6370764-9 (Version None)
Quarter: 2009Q3

REPORT INFORMATION
  Report Type: 
  Country: None (occurrence: None)
  Receive Date: 20090923
  Receipt Date: 20090914
  Transmission Date: 20100115
  Serious: Yes (Other)
  Sender: FDA-Public Use
  Company Number: IL-GENENTECH-290573

PATIENT
  Age: 50 Year
  Sex: Male

DRUGS (3)
  1. MABTHERA [Suspect]
     Indication: LYMPHOCYTIC LYMPHOMA
     Route: 042
  2. CYCLOPHOSPHAMIDE [Suspect]
     Indication: LYMPHOCYTIC LYMPHOMA
     Route: 065
  3. FLUDARABINE [Suspect]
     Indication: LYMPHOCYTIC LYMPHOMA
     Route: 065

REACTIONS (1)
  - BLINDNESS UNILATERAL [None]
